FAERS Safety Report 11272247 (Version 1)
Quarter: 2015Q3

REPORT INFORMATION
  Report Type: Spontaneous
  Country: US (occurrence: None)
  Receive Date: 20150713
  Receipt Date: 20150713
  Transmission Date: 20151125
  Serious: No
  Sender: FDA-Public Use
  Company Number: None

PATIENT
  Age: 25 Year
  Sex: Female
  Weight: 47 kg

DRUGS (1)
  1. MIRENA [Suspect]
     Active Substance: LEVONORGESTREL

REACTIONS (7)
  - Eczema [None]
  - Skin odour abnormal [None]
  - Weight decreased [None]
  - Alopecia [None]
  - Scar [None]
  - Skin fissures [None]
  - Abdominal pain [None]

NARRATIVE: CASE EVENT DATE: 20070314
